FAERS Safety Report 7798093-7 (Version None)
Quarter: 2011Q4

REPORT INFORMATION
  Report Type: 
  Country: None (occurrence: None)
  Receive Date: 20111004
  Receipt Date: 20110923
  Transmission Date: 20120403
  Serious: Yes (Hospitalization)
  Sender: FDA-Public Use
  Company Number: OMPQ-NO-1109S-1127

PATIENT
  Age: 27 Year
  Sex: Male

DRUGS (1)
  1. OMNIPAQUE 70 [Suspect]
     Indication: PRODUCT USED FOR UNKNOWN INDICATION
     Dosage: 75 ML, SINGLE DOSE, INTRAVENOUS
     Route: 042
     Dates: start: 20110902, end: 20110902

REACTIONS (3)
  - CHILLS [None]
  - WHITE BLOOD CELL COUNT INCREASED [None]
  - PYREXIA [None]
